FAERS Safety Report 6013469-6 (Version None)
Quarter: 2008Q4

REPORT INFORMATION
  Report Type: 
  Country: None (occurrence: None)
  Receive Date: 20081219
  Receipt Date: 20081215
  Transmission Date: 20090506
  Serious: Yes (Other)
  Sender: FDA-Public Use
  Company Number: JP-ASTRAZENECA-2008AP09044

PATIENT
  Age: 78 Year
  Sex: Male
  Weight: 50 kg

DRUGS (7)
  1. ZOLADEX [Suspect]
     Indication: PROSTATE CANCER
     Route: 058
     Dates: start: 20081024
  2. PROSTAL [Suspect]
     Indication: PROSTATE CANCER
     Route: 048
     Dates: start: 20081011, end: 20081121
  3. AMLODIN [Concomitant]
     Indication: HYPERTENSION
     Route: 048
     Dates: start: 20000101
  4. MAIBASTAN [Concomitant]
     Indication: HYPERLIPIDAEMIA
     Route: 048
     Dates: start: 20000101
  5. KETOBUN [Concomitant]
     Indication: HYPERURICAEMIA
     Route: 048
     Dates: start: 20000101
  6. CRAVIT [Concomitant]
     Indication: INFECTION PROPHYLAXIS
     Route: 048
     Dates: start: 20080915, end: 20080920
  7. APLACE [Concomitant]
     Indication: INFECTION PROPHYLAXIS
     Route: 048
     Dates: start: 20080915, end: 20080920

REACTIONS (2)
  - JAUNDICE [None]
  - LIVER DISORDER [None]
